FAERS Safety Report 23292733 (Version 2)
Quarter: 2024Q1

REPORT INFORMATION
  Report Type: Report from Study
  Country: US (occurrence: US)
  Receive Date: 20231213
  Receipt Date: 20240301
  Transmission Date: 20240410
  Serious: No
  Sender: FDA-Public Use
  Company Number: US-SA-2023SA378873

PATIENT
  Age: 29 Year
  Sex: Female

DRUGS (1)
  1. DUPILUMAB [Suspect]
     Active Substance: DUPILUMAB
     Indication: Dermatitis atopic
     Dosage: 300 MG, QOW
     Route: 058

REACTIONS (5)
  - Abdominal discomfort [Unknown]
  - Pyrexia [Unknown]
  - Injection site pain [Recovered/Resolved]
  - Eczema [Recovering/Resolving]
  - Incorrect dose administered [Unknown]
